FAERS Safety Report 6738166-0 (Version None)
Quarter: 2010Q2

REPORT INFORMATION
  Report Type: 
  Country: None (occurrence: None)
  Receive Date: 20100520
  Receipt Date: 20100513
  Transmission Date: 20101027
  Serious: Yes (Other)
  Sender: FDA-Public Use
  Company Number: CRC-10-074

PATIENT
  Sex: Female
  Weight: 88.905 kg

DRUGS (3)
  1. ALENDRONATE SODIUM [Suspect]
     Indication: BONE DENSITY DECREASED
     Dosage: ONCE WEEKLY
     Dates: start: 20100402
  2. ALENDRONATE SODIUM [Suspect]
     Indication: BONE DENSITY DECREASED
     Dosage: ONCE WEEKLY
     Dates: start: 20100409
  3. ENALAPRIL [Concomitant]

REACTIONS (15)
  - ARTHRALGIA [None]
  - DIARRHOEA [None]
  - DIZZINESS [None]
  - DYSPEPSIA [None]
  - FALL [None]
  - HEADACHE [None]
  - MALAISE [None]
  - MOUTH ULCERATION [None]
  - NECK PAIN [None]
  - OROPHARYNGEAL PAIN [None]
  - PAIN [None]
  - PAIN IN EXTREMITY [None]
  - RASH [None]
  - SENSATION OF FOREIGN BODY [None]
  - VOMITING [None]
